FAERS Safety Report 12119182 (Version 1)
Quarter: 2016Q1

REPORT INFORMATION
  Report Type: Spontaneous
  Country: US (occurrence: US)
  Receive Date: 20160226
  Receipt Date: 20160226
  Transmission Date: 20160526
  Serious: Yes (Death)
  Sender: FDA-Public Use
  Company Number: US-PURDUE-USA-2016-0128256

PATIENT
  Sex: Male

DRUGS (1)
  1. HYDROCODONE BITARTRATE (SIMILAR TO NDA 206627) [Suspect]
     Active Substance: HYDROCODONE BITARTRATE
     Indication: POST-TRAUMATIC STRESS DISORDER
     Route: 048

REACTIONS (1)
  - Accidental overdose [Fatal]

NARRATIVE: CASE EVENT DATE: 20150408
